FAERS Safety Report 7251370-0 (Version None)
Quarter: 2011Q1

REPORT INFORMATION
  Report Type: 
  Country: None (occurrence: None)
  Receive Date: 20110128
  Receipt Date: 20110124
  Transmission Date: 20110831
  Serious: Yes (Other)
  Sender: FDA-Public Use
  Company Number: US-PFIZER INC-2011017179

PATIENT
  Sex: Male
  Weight: 111.11 kg

DRUGS (7)
  1. LIPITOR [Suspect]
     Indication: BLOOD CHOLESTEROL INCREASED
     Dosage: 40 MG, DAILY
     Route: 048
     Dates: start: 20080101
  2. LIPITOR [Suspect]
     Dosage: 20 MG, 1X/DAY
  3. NIASPAN [Concomitant]
     Dosage: UNK
  4. COREG [Concomitant]
     Dosage: 25 MG, 2X/DAY
  5. VALSARTAN [Concomitant]
     Dosage: 150 MG, DAILY
  6. FUROSEMIDE [Concomitant]
     Dosage: 40 MG, UNK
  7. AVODART [Concomitant]
     Dosage: UNK

REACTIONS (6)
  - ARTHRALGIA [None]
  - BACK PAIN [None]
  - PYREXIA [None]
  - NEPHROLITHIASIS [None]
  - MYALGIA [None]
  - DIZZINESS [None]
